FAERS Safety Report 11393201 (Version 4)
Quarter: 2016Q4

REPORT INFORMATION
  Report Type: Report from Study
  Country: US (occurrence: US)
  Receive Date: 20150818
  Receipt Date: 20161011
  Transmission Date: 20170206
  Serious: Yes (Hospitalization, Other)
  Sender: FDA-Public Use
  Company Number: US-UCBSA-2015026052

PATIENT
  Sex: Female
  Weight: 56 kg

DRUGS (2)
  1. LEVETIRACETAM. [Suspect]
     Active Substance: LEVETIRACETAM
     Indication: PARTIAL SEIZURES
     Dosage: 2000 MG, 2X/DAY (BID)
     Route: 048
  2. LYRICA [Concomitant]
     Active Substance: PREGABALIN
     Indication: NEUROPATHY PERIPHERAL
     Dosage: 300 MG, 2X/DAY (BID)
     Route: 048

REACTIONS (6)
  - Depression [Unknown]
  - Mental disorder [Unknown]
  - Overdose [Unknown]
  - Anxiety [Unknown]
  - Bipolar disorder [Unknown]
  - Off label use [Unknown]
